FAERS Safety Report 5329494-4 (Version None)
Quarter: 2007Q2

REPORT INFORMATION
  Report Type: 
  Country: None (occurrence: None)
  Receive Date: 20070227
  Receipt Date: 20061102
  Transmission Date: 20071010
  Serious: Yes (Other)
  Sender: FDA-Public Use
  Company Number: 2006135236

PATIENT

DRUGS (2)
  1. CADUET [Suspect]
  2. CALCIUM CHANNEL BLOCKERS (CALCIUM CHANNEL BLOCKERS) [Suspect]

REACTIONS (1)
  - ANGIOEDEMA [None]
